FAERS Safety Report 7220081-X (Version None)
Quarter: 2011Q1

REPORT INFORMATION
  Report Type: 
  Country: None (occurrence: None)
  Receive Date: 20110111
  Receipt Date: 20110106
  Transmission Date: 20110831
  Serious: Yes (Hospitalization)
  Sender: FDA-Public Use
  Company Number: A0904258A

PATIENT
  Sex: Male

DRUGS (4)
  1. LAMOTRIGINE [Suspect]
     Indication: BIPOLAR DISORDER
     Route: 048
  2. LAMICTAL [Suspect]
     Dates: start: 20060101, end: 20060101
  3. UNKNOWN [Concomitant]
  4. NITRAZEPAM [Concomitant]

REACTIONS (4)
  - TESTICULAR PAIN [None]
  - STEVENS-JOHNSON SYNDROME [None]
  - SALIVA ALTERED [None]
  - HYPERSENSITIVITY [None]
